FAERS Safety Report 20121184 (Version 1)
Quarter: 2021Q4

REPORT INFORMATION
  Report Type: Spontaneous
  Country: US (occurrence: None)
  Receive Date: 20211124
  Receipt Date: 20211124
  Transmission Date: 20220303
  Serious: No
  Sender: FDA-Public Use
  Company Number: None

PATIENT
  Sex: Female

DRUGS (1)
  1. ICATIBANT ACETATE [Suspect]
     Active Substance: ICATIBANT ACETATE
     Indication: Complement factor abnormal
     Dosage: FREQUENCY : AS NEEDED;?
     Route: 058
     Dates: start: 202102

REACTIONS (6)
  - Weight decreased [None]
  - Pharyngeal swelling [None]
  - Throat tightness [None]
  - Dyspnoea [None]
  - Nasopharyngitis [None]
  - Respiratory tract infection viral [None]
